FAERS Safety Report 15842410 (Version 3)
Quarter: 2019Q2

REPORT INFORMATION
  Report Type: Spontaneous
  Country: US (occurrence: US)
  Receive Date: 20190118
  Receipt Date: 20190619
  Transmission Date: 20190711
  Serious: Yes (Other)
  Sender: FDA-Public Use
  Company Number: US-SA-2019SA012441

PATIENT
  Age: 61 Year
  Sex: Female

DRUGS (1)
  1. AUBAGIO [Suspect]
     Active Substance: TERIFLUNOMIDE
     Indication: MULTIPLE SCLEROSIS
     Dosage: 14 MG, QD
     Route: 048
     Dates: start: 20181120

REACTIONS (11)
  - Neuropathy peripheral [Not Recovered/Not Resolved]
  - Vision blurred [Unknown]
  - Fatigue [Unknown]
  - Peripheral swelling [Not Recovered/Not Resolved]
  - Fall [Unknown]
  - Rash [Unknown]
  - Pain in extremity [Not Recovered/Not Resolved]
  - Decreased appetite [Unknown]
  - Alopecia [Unknown]
  - Multiple sclerosis relapse [Not Recovered/Not Resolved]
  - Paraesthesia [Unknown]
